FAERS Safety Report 14965089 (Version 2)
Quarter: 2018Q2

REPORT INFORMATION
  Report Type: Spontaneous
  Country: DE (occurrence: DE)
  Receive Date: 20180601
  Receipt Date: 20180614
  Transmission Date: 20180711
  Serious: Yes (Life-Threatening, Other)
  Sender: FDA-Public Use
  Company Number: DE-VERTEX PHARMACEUTICALS-2018-003565

PATIENT
  Age: 33 Year
  Sex: Female
  Weight: 45 kg

DRUGS (6)
  1. ORKAMBI [Suspect]
     Active Substance: IVACAFTOR\LUMACAFTOR
     Indication: CYSTIC FIBROSIS
  2. PULMOZYME [Concomitant]
     Active Substance: DORNASE ALFA
     Dosage: DAILY DOSE: 1 DF DOSAGE FORM EVERY DAYS
     Route: 055
  3. KREON [Concomitant]
     Active Substance: PANCRELIPASE
     Route: 048
  4. ORKAMBI [Suspect]
     Active Substance: IVACAFTOR\LUMACAFTOR
     Indication: CYSTIC FIBROSIS
     Dosage: DAILY DOSE OF 800/500MG
     Route: 048
     Dates: start: 201702, end: 201708
  5. SALBUTAMOL [Concomitant]
     Active Substance: ALBUTEROL
     Dosage: DAILY DOSE: 2 DF DOSAGE FORM EVERY DAYS
     Route: 055
  6. PANTOPRAZOL [Concomitant]
     Active Substance: PANTOPRAZOLE SODIUM
     Dosage: DAILY DOSE: 40 MG MILLGRAM(S) EVERY DAYS
     Route: 048

REACTIONS (3)
  - Feeling of despair [Recovered/Resolved]
  - Suicidal ideation [Recovered/Resolved]
  - Depressive symptom [Recovered/Resolved]

NARRATIVE: CASE EVENT DATE: 20170401
